FAERS Safety Report 23050488 (Version 1)
Quarter: 2023Q4

REPORT INFORMATION
  Report Type: Spontaneous
  Country: US (occurrence: None)
  Receive Date: 20231009
  Receipt Date: 20231009
  Transmission Date: 20240110
  Serious: Yes (Hospitalization)
  Sender: FDA-Public Use
  Company Number: None

PATIENT
  Age: 79 Year
  Sex: Female
  Weight: 52.65 kg

DRUGS (1)
  1. DEXLANSOPRAZOLE [Suspect]
     Active Substance: DEXLANSOPRAZOLE
     Indication: Barrett^s oesophagus
     Dosage: FREQUENCY : DAILY;?
     Route: 048
     Dates: start: 20231002

REACTIONS (5)
  - Chest pain [None]
  - Neck pain [None]
  - Pruritus [None]
  - Gastrooesophageal reflux disease [None]
  - Blood pressure increased [None]

NARRATIVE: CASE EVENT DATE: 20231005
